FAERS Safety Report 9201649 (Version 2)
Quarter: 2013Q4

REPORT INFORMATION
  Report Type: Report from Study
  Country: US (occurrence: US)
  Receive Date: 20130401
  Receipt Date: 20131009
  Transmission Date: 20140711
  Serious: Yes (Other)
  Sender: FDA-Public Use
  Company Number: PHEH2013US007211

PATIENT
  Age: 14 Year
  Sex: Female
  Weight: 46.2 kg

DRUGS (31)
  1. TOBI [Suspect]
     Indication: CYSTIC FIBROSIS
     Dosage: 300 UKN, BID
     Dates: start: 200712
  2. SPIRIVA [Concomitant]
  3. PLAVIX [Concomitant]
  4. PROAIR (FLUTICASONE PROPIONATE) [Concomitant]
  5. ALBUTEROL [Concomitant]
  6. ATENOLOL [Concomitant]
  7. MVI [Concomitant]
  8. CIPROFLOXACIN HCL [Concomitant]
     Dosage: UNK UKN, UNK
  9. PRILOSEC [Concomitant]
  10. PREVACID [Concomitant]
  11. FERROUS SULFATE [Concomitant]
  12. CEFUROXIME [Concomitant]
  13. NORVASC [Concomitant]
  14. PROTONIX [Concomitant]
  15. LISINOPRIL [Concomitant]
  16. SPIRONOLACTONA ALTER [Concomitant]
  17. LASIX [Concomitant]
  18. PREDNISONE [Concomitant]
  19. COUMADIN ^BOOTS^ [Concomitant]
  20. PROCARDIA XL [Concomitant]
  21. VIAGRA [Concomitant]
  22. LIPITOR [Concomitant]
  23. KCL [Concomitant]
  24. PULMOZYME [Concomitant]
  25. CONCERTA [Concomitant]
  26. WELLBUTRIN XL [Concomitant]
  27. SINGULAIR [Concomitant]
  28. COREG [Concomitant]
  29. ACETAMINOPHEN [Concomitant]
  30. CEFDINIR [Concomitant]
  31. BUDESONIDE [Concomitant]

REACTIONS (1)
  - Deep vein thrombosis [Recovered/Resolved]
